FAERS Safety Report 7642878-4 (Version None)
Quarter: 2011Q3

REPORT INFORMATION
  Report Type: 
  Country: None (occurrence: None)
  Receive Date: 20110728
  Receipt Date: 20110715
  Transmission Date: 20111222
  Serious: Yes (Other)
  Sender: FDA-Public Use
  Company Number: PHEH2008US09971

PATIENT
  Sex: Male
  Weight: 79.5 kg

DRUGS (26)
  1. SPIRONOLACTONE [Concomitant]
     Indication: HYPERTENSION
  2. ALTACE [Concomitant]
  3. PRILOSEC [Concomitant]
  4. METRONIDAZOLE [Concomitant]
  5. TYLENOL W/ CODEINE NO. 3 [Concomitant]
  6. AREDIA [Suspect]
     Dosage: UNK
  7. AMOXICILLIN [Concomitant]
  8. DEXAMETHASONE [Concomitant]
  9. ADVIL LIQUI-GELS [Concomitant]
     Indication: PAIN
  10. AREDIA [Suspect]
     Indication: MULTIPLE MYELOMA
     Dosage: 90 MG, Q 4 WEEKS X 6
     Dates: start: 20010116, end: 20020218
  11. WARFARIN SODIUM [Concomitant]
     Indication: ATRIAL FIBRILLATION
  12. ZOCOR [Concomitant]
  13. AVELOX [Concomitant]
  14. ZOMETA [Suspect]
     Indication: MULTIPLE MYELOMA
     Dosage: 4 MG, Q 4 WEEKS X 6
     Route: 042
     Dates: start: 20020218
  15. HYDROCODONE BITARTRATE [Concomitant]
  16. AMOXIL ^WYETH-AYERST^ [Concomitant]
  17. NORCO [Concomitant]
     Dosage: 1 DF, Q4H PRN
  18. VIAGRA [Concomitant]
     Dosage: 50 MG, UNK
  19. LIPITOR [Suspect]
     Indication: BLOOD CHOLESTEROL INCREASED
     Dosage: UNK
  20. TEGRETOL [Suspect]
     Indication: TIC
     Dosage: 200 MG, TID
     Dates: end: 20080101
  21. CHLORHEXIDINE GLUCONATE [Concomitant]
  22. PERIDEX [Concomitant]
     Dosage: UNK
  23. LEVSIN [Concomitant]
  24. AUGMENTIN '125' [Concomitant]
  25. COREG [Concomitant]
     Indication: HYPERTENSION
  26. AZITHROMYCIN [Concomitant]

REACTIONS (70)
  - ORAL CAVITY FISTULA [None]
  - FALL [None]
  - CARPAL TUNNEL SYNDROME [None]
  - RASH [None]
  - DECREASED APPETITE [None]
  - EXOSTOSIS [None]
  - DISEASE PROGRESSION [None]
  - HEADACHE [None]
  - BRUXISM [None]
  - TOOTHACHE [None]
  - ARTHRALGIA [None]
  - SINUS TACHYCARDIA [None]
  - OSTEONECROSIS OF JAW [None]
  - OSTEOMYELITIS [None]
  - INJURY [None]
  - PAIN IN JAW [None]
  - NECK PAIN [None]
  - MUSCLE SPASMS [None]
  - ERECTILE DYSFUNCTION [None]
  - SQUAMOUS CELL CARCINOMA [None]
  - DRY SKIN [None]
  - PAIN [None]
  - ANHEDONIA [None]
  - SPINAL OSTEOARTHRITIS [None]
  - CONTUSION [None]
  - INTERVERTEBRAL DISC PROTRUSION [None]
  - ORAL DISORDER [None]
  - MUSCULOSKELETAL PAIN [None]
  - SINUSITIS [None]
  - CONNECTIVE TISSUE INFLAMMATION [None]
  - DYSARTHRIA [None]
  - LOSS OF CONSCIOUSNESS [None]
  - IMPAIRED HEALING [None]
  - SECONDARY SEQUESTRUM [None]
  - TOOTH ABSCESS [None]
  - MUSCLE TWITCHING [None]
  - HYPERLIPIDAEMIA [None]
  - PAIN IN EXTREMITY [None]
  - ROTATOR CUFF SYNDROME [None]
  - CAROTID ARTERY STENOSIS [None]
  - TRIGEMINAL NEURALGIA [None]
  - MUSCLE CONTRACTIONS INVOLUNTARY [None]
  - OSTEOARTHRITIS [None]
  - ANXIETY [None]
  - BONE LESION [None]
  - LYMPHADENOPATHY [None]
  - INTERVERTEBRAL DISC SPACE NARROWING [None]
  - NEURITIS [None]
  - CONTRAST MEDIA REACTION [None]
  - CERVICOBRACHIAL SYNDROME [None]
  - DRUG WITHDRAWAL SYNDROME [None]
  - POLYP [None]
  - ATELECTASIS [None]
  - RHINITIS ALLERGIC [None]
  - THROMBOCYTOPENIA [None]
  - RADICULITIS CERVICAL [None]
  - PARAESTHESIA [None]
  - MUSCULAR WEAKNESS [None]
  - BASAL CELL CARCINOMA [None]
  - WEIGHT DECREASED [None]
  - MAJOR DEPRESSION [None]
  - HYPOAESTHESIA [None]
  - DISABILITY [None]
  - BONE DISORDER [None]
  - INTERVERTEBRAL DISC DEGENERATION [None]
  - NEUROPATHY PERIPHERAL [None]
  - SYNOVITIS [None]
  - CERVICAL SPINAL STENOSIS [None]
  - EXCESSIVE EYE BLINKING [None]
  - PANIC ATTACK [None]
